FAERS Safety Report 7427122-5 (Version None)
Quarter: 2011Q2

REPORT INFORMATION
  Report Type: 
  Country: None (occurrence: None)
  Receive Date: 20110420
  Receipt Date: 20110119
  Transmission Date: 20111010
  Serious: No
  Sender: FDA-Public Use
  Company Number: US-TEVA-262788USA

PATIENT
  Sex: Female
  Weight: 65.83 kg

DRUGS (3)
  1. PLAN B ONE-STEP [Suspect]
     Indication: POST COITAL CONTRACEPTION
     Dosage: 1.5 MILLIGRAM;
     Route: 048
     Dates: start: 20110103, end: 20110103
  2. NOVOLOG [Concomitant]
     Indication: DIABETES MELLITUS
     Dates: start: 20010101
  3. NOVOLIN N [Concomitant]
     Indication: DIABETES MELLITUS
     Dates: start: 20010101

REACTIONS (4)
  - ABDOMINAL PAIN UPPER [None]
  - MENSTRUATION IRREGULAR [None]
  - DIARRHOEA [None]
  - HEADACHE [None]
